FAERS Safety Report 22332280 (Version 1)
Quarter: 2023Q2

REPORT INFORMATION
  Report Type: Spontaneous
  Country: US (occurrence: None)
  Receive Date: 20230516
  Receipt Date: 20230516
  Transmission Date: 20230721
  Serious: Yes (Hospitalization, Disabling, Other)
  Sender: FDA-Public Use
  Company Number: None

PATIENT
  Age: 40 Year
  Sex: Female

DRUGS (3)
  1. KENALOG-40 [Suspect]
     Active Substance: TRIAMCINOLONE ACETONIDE
     Indication: Myalgia
     Dosage: OTHER FREQUENCY : 4 INJECTIONS;?
     Route: 030
     Dates: start: 20221022
  2. HYDROXYZINE [Suspect]
     Active Substance: HYDROXYZINE HYDROCHLORIDE
  3. ATIVAN [Concomitant]
     Active Substance: LORAZEPAM

REACTIONS (18)
  - Exostosis [None]
  - Nausea [None]
  - Dizziness [None]
  - Hyperhidrosis [None]
  - Formication [None]
  - Diarrhoea [None]
  - Pyrexia [None]
  - Immune system disorder [None]
  - Lip pain [None]
  - Anxiety [None]
  - Agitation [None]
  - Fear [None]
  - Alopecia [None]
  - Gastrointestinal disorder [None]
  - Decreased appetite [None]
  - Heavy menstrual bleeding [None]
  - Muscle twitching [None]
  - Insomnia [None]

NARRATIVE: CASE EVENT DATE: 20221022
